FAERS Safety Report 4634990-9 (Version None)
Quarter: 2005Q2

REPORT INFORMATION
  Report Type: 
  Country: None (occurrence: None)
  Receive Date: 20050414
  Receipt Date: 20050404
  Transmission Date: 20051028
  Serious: Yes (Other)
  Sender: FDA-Public Use
  Company Number: 200513155GDDC

PATIENT
  Sex: Male
  Weight: 90 kg

DRUGS (5)
  1. METRONIDAZOLE [Suspect]
     Indication: TOOTH ABSCESS
     Dosage: DOSE: 200 MG ONE THREE TIMES A DAY (BUT 4 TAKEN)
     Route: 048
     Dates: start: 20050315, end: 20050316
  2. FELODIPINE [Concomitant]
     Indication: HYPERTENSION
     Dates: start: 20040608
  3. ATORVASTATIN CALCIUM [Concomitant]
     Indication: BLOOD CHOLESTEROL INCREASED
     Dates: start: 20020222
  4. ASPIRIN [Concomitant]
     Dates: start: 20000101
  5. METFORMIN HCL [Concomitant]
     Indication: DIABETES MELLITUS
     Dates: start: 20040701

REACTIONS (3)
  - ASTHENIA [None]
  - BALANCE DISORDER [None]
  - DIZZINESS [None]
